FAERS Safety Report 5926829-6 (Version None)
Quarter: 2008Q4

REPORT INFORMATION
  Report Type: 
  Country: None (occurrence: None)
  Receive Date: 20081022
  Receipt Date: 20031229
  Transmission Date: 20090506
  Serious: Yes (Death)
  Sender: FDA-Public Use
  Company Number: US-WYE-H06425308

PATIENT
  Age: 22 Year

DRUGS (1)
  1. DEXTROMETHORPHAN HYDROBROMIDE [Suspect]

REACTIONS (1)
  - OVERDOSE [None]
